FAERS Safety Report 19472594 (Version 1)
Quarter: 2021Q2

REPORT INFORMATION
  Report Type: Report from Study
  Country: US (occurrence: US)
  Receive Date: 20210629
  Receipt Date: 20210629
  Transmission Date: 20210717
  Serious: Yes (Hospitalization, Other)
  Sender: FDA-Public Use
  Company Number: US-JNJFOC-20210556272

PATIENT
  Age: 76 Year
  Sex: Female
  Weight: 66.8 kg

DRUGS (4)
  1. METOPROLOL. [Concomitant]
     Active Substance: METOPROLOL
  2. UPTRAVI [Suspect]
     Active Substance: SELEXIPAG
     Indication: PULMONARY ARTERIAL HYPERTENSION
     Route: 048
  3. WARFARIN [Concomitant]
     Active Substance: WARFARIN
  4. ADEMPAS [Concomitant]
     Active Substance: RIOCIGUAT
     Dosage: DECREASED TO 0.5MG

REACTIONS (8)
  - Bronchial obstruction [Unknown]
  - Gait disturbance [Unknown]
  - Hypotension [Unknown]
  - Fall [Unknown]
  - Contusion [Unknown]
  - Obstructive airways disorder [Unknown]
  - Asthenia [Unknown]
  - Full blood count decreased [Unknown]

NARRATIVE: CASE EVENT DATE: 20210514
